FAERS Safety Report 7961217-2 (Version None)
Quarter: 2011Q4

REPORT INFORMATION
  Report Type: 
  Country: None (occurrence: None)
  Receive Date: 20111202
  Receipt Date: 20111118
  Transmission Date: 20120403
  Serious: Yes (Death)
  Sender: FDA-Public Use
  Company Number: 2011ST000444

PATIENT
  Age: 73 Year
  Sex: Male

DRUGS (4)
  1. MATULANE [Suspect]
     Indication: HODGKIN'S DISEASE
     Dosage: 100 MG;X1;PO
     Route: 048
  2. PREDNISONE TAB [Suspect]
     Indication: HODGKIN'S DISEASE
  3. CYCLOPHOSPHAMIDE [Suspect]
     Indication: HODGKIN'S DISEASE
  4. ETOPOSIDE [Suspect]
     Indication: HODGKIN'S DISEASE

REACTIONS (2)
  - RESPIRATORY FAILURE [None]
  - NEUTROPENIC SEPSIS [None]
